FAERS Safety Report 8304720-8 (Version None)
Quarter: 2012Q2

REPORT INFORMATION
  Report Type: 
  Country: None (occurrence: None)
  Receive Date: 20120423
  Receipt Date: 20120413
  Transmission Date: 20120825
  Serious: Yes (Hospitalization)
  Sender: FDA-Public Use
  Company Number: US-ASTRAZENECA-2012SE24822

PATIENT
  Sex: Female

DRUGS (2)
  1. SEROQUEL XR [Suspect]
     Route: 048
  2. RISPERDAL [Concomitant]

REACTIONS (4)
  - INTENTIONAL DRUG MISUSE [None]
  - COMMUNICATION DISORDER [None]
  - THINKING ABNORMAL [None]
  - SOLILOQUY [None]
